FAERS Safety Report 4977643-X (Version None)
Quarter: 2006Q2

REPORT INFORMATION
  Report Type: 
  Country: None (occurrence: None)
  Receive Date: 20060420
  Receipt Date: 20051024
  Transmission Date: 20061013
  Serious: No
  Sender: FDA-Public Use
  Company Number: US-GLAXOSMITHKLINE-A0579402A

PATIENT
  Age: 48 Year
  Sex: Female

DRUGS (1)
  1. LITHIUM CARBONATE [Suspect]
     Indication: BIPOLAR DISORDER
     Dosage: 600MG TWICE PER DAY
     Route: 048

REACTIONS (3)
  - DYSGEUSIA [None]
  - NAUSEA [None]
  - SALIVARY HYPERSECRETION [None]
